FAERS Safety Report 13388608 (Version 1)
Quarter: 2017Q1

REPORT INFORMATION
  Report Type: Spontaneous
  Country: US (occurrence: PR)
  Receive Date: 20170330
  Receipt Date: 20170330
  Transmission Date: 20170429
  Serious: Yes (Other)
  Sender: FDA-Public Use
  Company Number: US-TEVA-753818USA

PATIENT
  Sex: Female

DRUGS (1)
  1. COPAXONE [Suspect]
     Active Substance: GLATIRAMER ACETATE
     Indication: MULTIPLE SCLEROSIS
     Dosage: 20 MILLIGRAM DAILY;
     Dates: end: 20150702

REACTIONS (5)
  - Injection site irritation [Unknown]
  - Limb injury [Unknown]
  - Injection site ulcer [Unknown]
  - Injection site pain [Unknown]
  - Chills [Unknown]

NARRATIVE: CASE EVENT DATE: 20150702
